FAERS Safety Report 14806283 (Version 1)
Quarter: 2018Q2

REPORT INFORMATION
  Report Type: Spontaneous
  Country: FR (occurrence: FR)
  Receive Date: 20180425
  Receipt Date: 20180425
  Transmission Date: 20180711
  Serious: Yes (Other)
  Sender: FDA-Public Use
  Company Number: FR-PFIZER INC-2018168820

PATIENT
  Age: 58 Year
  Sex: Female
  Weight: 72 kg

DRUGS (1)
  1. AROMASINE [Suspect]
     Active Substance: EXEMESTANE
     Indication: BREAST CANCER
     Dosage: UNK
     Route: 048
     Dates: start: 201601

REACTIONS (3)
  - Vulvovaginal dryness [Not Recovered/Not Resolved]
  - Oral pain [Not Recovered/Not Resolved]
  - Dry skin [Not Recovered/Not Resolved]

NARRATIVE: CASE EVENT DATE: 201801
